FAERS Safety Report 15493068 (Version 1)
Quarter: 2018Q4

REPORT INFORMATION
  Report Type: Report from Study
  Country: US (occurrence: US)
  Receive Date: 20181012
  Receipt Date: 20181012
  Transmission Date: 20190205
  Serious: Yes (Death, Hospitalization, Other)
  Sender: FDA-Public Use
  Company Number: US-TEVA-2018-US-958637

PATIENT
  Sex: Female
  Weight: 66.74 kg

DRUGS (1)
  1. AUSTEDO [Suspect]
     Active Substance: DEUTETRABENAZINE
     Indication: TARDIVE DYSKINESIA
     Dosage: 12 MILLIGRAM DAILY;
     Route: 065
     Dates: start: 201807, end: 201809

REACTIONS (3)
  - Cardiac failure [Unknown]
  - Catheterisation cardiac [Fatal]
  - Acute myocardial infarction [Unknown]
